FAERS Safety Report 4895819-7 (Version None)
Quarter: 2005Q4

REPORT INFORMATION
  Report Type: 
  Country: None (occurrence: None)
  Receive Date: 20051220
  Receipt Date: 20050504
  Transmission Date: 20060501
  Serious: Yes (Other)
  Sender: FDA-Public Use
  Company Number: PHEH2005US04830

PATIENT
  Age: 77 Year
  Sex: Female

DRUGS (1)
  1. AREDIA [Suspect]
     Dosage: 90 MG, INTRAVENOUS
     Route: 042

REACTIONS (1)
  - BLOOD CALCIUM INCREASED [None]
